FAERS Safety Report 6710665-7 (Version None)
Quarter: 2010Q2

REPORT INFORMATION
  Report Type: 
  Country: None (occurrence: None)
  Receive Date: 20100504
  Receipt Date: 20100504
  Transmission Date: 20101027
  Serious: Yes (Life-Threatening, Other)
  Sender: FDA-Public Use
  Company Number: None

PATIENT
  Age: 63 Year
  Sex: Female
  Weight: 49.8957 kg

DRUGS (1)
  1. LEVAQUIN [Suspect]
     Indication: SINUSITIS
     Dosage: 1 PER DATE PO
     Route: 048
     Dates: start: 20100205, end: 20100209

REACTIONS (6)
  - CLOSTRIDIUM DIFFICILE COLITIS [None]
  - EATING DISORDER [None]
  - PRODUCT QUALITY ISSUE [None]
  - ROTATOR CUFF SYNDROME [None]
  - TENDON RUPTURE [None]
  - WEIGHT DECREASED [None]
